FAERS Safety Report 7811787-X (Version None)
Quarter: 2011Q4

REPORT INFORMATION
  Report Type: 
  Country: None (occurrence: None)
  Receive Date: 20111011
  Receipt Date: 20110714
  Transmission Date: 20120403
  Serious: No
  Sender: FDA-Public Use
  Company Number: DL2011-0559

PATIENT
  Age: 25 Year
  Sex: Female

DRUGS (2)
  1. MISOPROSTOL [Suspect]
     Dosage: 800 MCG, BUCCAL, DID NOT TAKE
     Route: 002
  2. MIFEPRISTONE (MIFEPREX) [Suspect]
     Indication: ABORTION INDUCED
     Dosage: 200 MG, ORAL, BUT PATIENT STATED SHE SPIT IT OUT
     Route: 048
     Dates: start: 20110309

REACTIONS (1)
  - PREGNANCY [None]
